FAERS Safety Report 9293522 (Version 2)
Quarter: 2013Q2

REPORT INFORMATION
  Report Type: Spontaneous
  Country: JP (occurrence: JP)
  Receive Date: 20130516
  Receipt Date: 20130521
  Transmission Date: 20140414
  Serious: Yes (Hospitalization)
  Sender: FDA-Public Use
  Company Number: JP-GLAXOSMITHKLINE-B0639051A

PATIENT
  Age: 41 Year
  Sex: Female

DRUGS (13)
  1. LAMICTAL [Suspect]
     Indication: SCHIZOPHRENIA
     Dosage: 25MG ALTERNATE DAYS
     Route: 048
     Dates: start: 20100203, end: 20100216
  2. LAMICTAL [Suspect]
     Indication: SCHIZOPHRENIA
     Dosage: 25MG PER DAY
     Route: 048
     Dates: start: 20100217, end: 20100311
  3. ZYPREXA [Concomitant]
     Route: 048
     Dates: start: 20090929
  4. LONASEN [Concomitant]
     Route: 048
     Dates: start: 20091109
  5. SODIUM VALPROATE [Concomitant]
     Route: 048
  6. TASMOLIN [Concomitant]
     Route: 048
     Dates: start: 20091005
  7. WYPAX [Concomitant]
     Route: 048
  8. WYPAX [Concomitant]
     Dosage: 1MG PER DAY
     Route: 048
  9. MAGNESIUM OXIDE [Concomitant]
     Dosage: 1G THREE TIMES PER DAY
     Route: 048
  10. HIRNAMIN [Concomitant]
     Route: 048
  11. LITHIUM CARBONATE [Concomitant]
     Route: 048
  12. DEPAKENE-R [Concomitant]
     Dosage: 200MG TWICE PER DAY
     Route: 048
  13. HALCION [Concomitant]
     Route: 048

REACTIONS (3)
  - Schizophrenia [Unknown]
  - Depressive symptom [Unknown]
  - Rash [Recovered/Resolved]
